FAERS Safety Report 24171934 (Version 1)
Quarter: 2024Q3

REPORT INFORMATION
  Report Type: Report from Study
  Country: US (occurrence: None)
  Receive Date: 20240805
  Receipt Date: 20240805
  Transmission Date: 20241016
  Serious: Yes (Hospitalization, Other)
  Sender: ASTRAZENECA
  Company Number: 2023A115431

PATIENT

DRUGS (1)
  1. TEZSPIRE [Suspect]
     Active Substance: TEZEPELUMAB-EKKO

REACTIONS (5)
  - Pneumonia [Unknown]
  - Lung disorder [Unknown]
  - Post-acute COVID-19 syndrome [Unknown]
  - Amnesia [Unknown]
  - Asthma [Unknown]
